FAERS Safety Report 6592127-3 (Version None)
Quarter: 2010Q1

REPORT INFORMATION
  Report Type: 
  Country: None (occurrence: None)
  Receive Date: 20100221
  Receipt Date: 20090901
  Transmission Date: 20100710
  Serious: No
  Sender: FDA-Public Use
  Company Number: US-ALLERGAN-0912278US

PATIENT
  Age: 48 Year
  Sex: Female

DRUGS (4)
  1. BOTOX COSMETIC [Suspect]
     Indication: SKIN WRINKLING
     Dosage: 30 UNITS, SINGLE
     Dates: start: 20090825, end: 20090825
  2. NEXIUM [Concomitant]
  3. RESTASIS [Concomitant]
  4. ZOLOFT [Concomitant]

REACTIONS (2)
  - EYELID PTOSIS [None]
  - WRONG TECHNIQUE IN DRUG USAGE PROCESS [None]
